FAERS Safety Report 15277499 (Version 3)
Quarter: 2020Q4

REPORT INFORMATION
  Report Type: Report from Study
  Country: US (occurrence: US)
  Receive Date: 20180814
  Receipt Date: 20201105
  Transmission Date: 20210113
  Serious: No
  Sender: FDA-Public Use
  Company Number: US-AMGEN-USASL2018108030

PATIENT
  Age: 57 Year
  Sex: Male

DRUGS (2)
  1. LISINOPRIL HCTZ [Concomitant]
     Active Substance: HYDROCHLOROTHIAZIDE\LISINOPRIL
     Indication: BLOOD PRESSURE ABNORMAL
     Dosage: UNK UNK, QD (20/25)
     Route: 065
  2. ENBREL [Suspect]
     Active Substance: ETANERCEPT
     Indication: RHEUMATOID ARTHRITIS
     Dosage: 50 MILLIGRAM, QWK
     Route: 065
     Dates: start: 2000

REACTIONS (7)
  - Stress [Unknown]
  - Productive cough [Unknown]
  - Respiratory disorder [Unknown]
  - Wrong technique in product usage process [Unknown]
  - Epistaxis [Unknown]
  - Infection [Unknown]
  - Sinus disorder [Unknown]

NARRATIVE: CASE EVENT DATE: 2014
